FAERS Safety Report 17870363 (Version 5)
Quarter: 2020Q3

REPORT INFORMATION
  Report Type: Spontaneous
  Country: US (occurrence: US)
  Receive Date: 20200608
  Receipt Date: 20200826
  Transmission Date: 20201103
  Serious: Yes (Other)
  Sender: FDA-Public Use
  Company Number: US-GLAXOSMITHKLINE-US2020AMR095165

PATIENT
  Age: 70 Year
  Sex: Female

DRUGS (2)
  1. BENLYSTA [Suspect]
     Active Substance: BELIMUMAB
     Indication: SYSTEMIC LUPUS ERYTHEMATOSUS
     Dosage: 10 MG/KG
     Route: 042
  2. BENLYSTA [Suspect]
     Active Substance: BELIMUMAB
     Indication: SYSTEMIC LUPUS ERYTHEMATOSUS
     Dosage: 200 MG/ML, WE (EVERY WEEK)
     Route: 058
     Dates: start: 20200625

REACTIONS (9)
  - Hyperhidrosis [Unknown]
  - Social problem [Unknown]
  - Product dose omission issue [Unknown]
  - Dry gangrene [Unknown]
  - Therapy interrupted [Unknown]
  - Malaise [Unknown]
  - Hypoaesthesia [Unknown]
  - Dysgeusia [Unknown]
  - Systemic lupus erythematosus [Unknown]

NARRATIVE: CASE EVENT DATE: 2020
